FAERS Safety Report 17509990 (Version 1)
Quarter: 2020Q1

REPORT INFORMATION
  Report Type: Spontaneous
  Country: US (occurrence: US)
  Receive Date: 20200306
  Receipt Date: 20200306
  Transmission Date: 20200409
  Serious: No
  Sender: FDA-Public Use
  Company Number: US-BAUSCH-BL-2020-006381

PATIENT
  Age: 33 Year
  Sex: Male

DRUGS (2)
  1. XIFAXAN [Suspect]
     Active Substance: RIFAXIMIN
     Indication: GASTROINTESTINAL BACTERIAL OVERGROWTH
     Dosage: FOR 14 DAYS
     Route: 048
     Dates: start: 20200224
  2. XIFAXAN [Suspect]
     Active Substance: RIFAXIMIN
     Indication: PRODUCT USE IN UNAPPROVED INDICATION

REACTIONS (4)
  - Product size issue [Unknown]
  - Expired product administered [Unknown]
  - Product use in unapproved indication [Unknown]
  - Dysphagia [Unknown]

NARRATIVE: CASE EVENT DATE: 202002
